FAERS Safety Report 24848442 (Version 6)
Quarter: 2025Q3

REPORT INFORMATION
  Report Type: Spontaneous
  Country: CA (occurrence: CA)
  Receive Date: 20250116
  Receipt Date: 20250809
  Transmission Date: 20251020
  Serious: Yes (Hospitalization, Other)
  Sender: CELLTRION
  Company Number: CA-PFIZER INC-202300277596

PATIENT

DRUGS (12)
  1. INFLECTRA [Suspect]
     Active Substance: INFLIXIMAB-DYYB
     Indication: Crohn^s disease
     Dates: start: 20231023
  2. INFLECTRA [Suspect]
     Active Substance: INFLIXIMAB-DYYB
     Dates: start: 20240417, end: 20240417
  3. INFLECTRA [Suspect]
     Active Substance: INFLIXIMAB-DYYB
     Dates: start: 20241127
  4. INFLECTRA [Suspect]
     Active Substance: INFLIXIMAB-DYYB
     Dates: start: 20250108
  5. INFLECTRA [Suspect]
     Active Substance: INFLIXIMAB-DYYB
     Dates: start: 20250402
  6. INFLECTRA [Suspect]
     Active Substance: INFLIXIMAB-DYYB
     Dates: start: 20250514, end: 20250514
  7. APIXABAN [Concomitant]
     Active Substance: APIXABAN
     Dates: start: 20250108
  8. HYDROMORPHONE [Concomitant]
     Active Substance: HYDROMORPHONE
  9. IRON [Concomitant]
     Active Substance: IRON
     Dates: start: 20250320
  10. LOPERAMIDE HYDROCHLORIDE [Concomitant]
     Active Substance: LOPERAMIDE HYDROCHLORIDE
  11. METHOTREXATE [Concomitant]
     Active Substance: METHOTREXATE
     Indication: Crohn^s disease
     Dosage: 15 MG, WEEKLY
     Dates: start: 2013
  12. METOPROLOL [Concomitant]
     Active Substance: METOPROLOL
     Dates: start: 20250108

REACTIONS (15)
  - Oxygen saturation decreased [Unknown]
  - Atrial fibrillation [Recovered/Resolved]
  - Atrial fibrillation [Recovering/Resolving]
  - Heart rate irregular [Unknown]
  - Tachycardia [Recovering/Resolving]
  - Animal bite [Unknown]
  - Hypotension [Recovered/Resolved]
  - Lethargy [Recovered/Resolved]
  - Fall [Unknown]
  - Head injury [Unknown]
  - Palmar erythema [Unknown]
  - Contusion [Unknown]
  - Haematoma [Unknown]
  - Off label use [Unknown]
  - Inappropriate schedule of product administration [Unknown]

NARRATIVE: CASE EVENT DATE: 20230101
